FAERS Safety Report 7562200-1 (Version None)
Quarter: 2011Q2

REPORT INFORMATION
  Report Type: 
  Country: None (occurrence: None)
  Receive Date: 20110614
  Receipt Date: 20110602
  Transmission Date: 20111010
  Serious: Yes (Other)
  Sender: FDA-Public Use
  Company Number: TRP_07759_2011

PATIENT
  Age: 63 Year
  Sex: Male

DRUGS (2)
  1. RIBAVIRIN [Suspect]
     Indication: HEPATITIS C
     Dosage: DF
  2. PEGYLATED INTERFERON ALFA-2A (PEGYLATED INTERFERON-2A) [Suspect]
     Indication: HEPATITIS C
     Dosage: DF

REACTIONS (1)
  - ALPHA 1 FOETOPROTEIN INCREASED [None]
